FAERS Safety Report 10799043 (Version 1)
Quarter: 2015Q1

REPORT INFORMATION
  Report Type: Spontaneous
  Country: US (occurrence: US)
  Receive Date: 20150216
  Receipt Date: 20150216
  Transmission Date: 20150721
  Serious: No
  Sender: FDA-Public Use
  Company Number: US-ALLERGAN-1404406US

PATIENT
  Age: 64 Year
  Sex: Female

DRUGS (1)
  1. RESTASIS [Suspect]
     Active Substance: CYCLOSPORINE
     Indication: DRY EYE
     Dosage: 2-3 DROPS, BID
     Route: 047
     Dates: start: 201401

REACTIONS (5)
  - Incorrect dose administered [Unknown]
  - Vision blurred [Recovered/Resolved]
  - Drug hypersensitivity [Recovering/Resolving]
  - Dark circles under eyes [Recovering/Resolving]
  - Dry skin [Recovering/Resolving]
